FAERS Safety Report 6832253-4 (Version None)
Quarter: 2010Q3

REPORT INFORMATION
  Report Type: 
  Country: None (occurrence: None)
  Receive Date: 20100712
  Receipt Date: 20100630
  Transmission Date: 20110219
  Serious: Yes (Other)
  Sender: FDA-Public Use
  Company Number: US-WYE-H15959910

PATIENT
  Sex: Female
  Weight: 124.85 kg

DRUGS (2)
  1. PRISTIQ [Suspect]
     Indication: MENOPAUSAL SYMPTOMS
     Route: 048
     Dates: start: 20100624, end: 20100625
  2. PRISTIQ [Suspect]
     Indication: DEPRESSION

REACTIONS (21)
  - ACTIVITIES OF DAILY LIVING IMPAIRED [None]
  - ASTHENIA [None]
  - CONDITION AGGRAVATED [None]
  - DECREASED APPETITE [None]
  - DIARRHOEA [None]
  - DIZZINESS [None]
  - DROOLING [None]
  - EATING DISORDER [None]
  - EYE MOVEMENT DISORDER [None]
  - FATIGUE [None]
  - FEELING DRUNK [None]
  - IMPAIRED DRIVING ABILITY [None]
  - INAPPROPRIATE AFFECT [None]
  - INTENTIONAL DRUG MISUSE [None]
  - MOVEMENT DISORDER [None]
  - MUSCLE SPASMS [None]
  - MYALGIA [None]
  - NAUSEA [None]
  - SOMNOLENCE [None]
  - SWELLING [None]
  - TREMOR [None]
